FAERS Safety Report 5380101-4 (Version None)
Quarter: 2007Q2

REPORT INFORMATION
  Report Type: 
  Country: None (occurrence: None)
  Receive Date: 20070530
  Receipt Date: 20070307
  Transmission Date: 20071010
  Serious: No
  Sender: FDA-Public Use
  Company Number: 2007PV031286

PATIENT
  Age: 72 Year
  Sex: Male
  Weight: 125.1928 kg

DRUGS (8)
  1. BYETTA [Suspect]
     Indication: DIABETES MELLITUS NON-INSULIN-DEPENDENT
     Dosage: 5 MCG; HS; SC; 5 MCG; BID; SC; 10 MCG; QPM; SC; 5 MCG; QAM; SC; 10 MCG; BID; SC; 5 MCG; BID; SC
     Route: 058
     Dates: start: 20060201, end: 20060101
  2. BYETTA [Suspect]
     Indication: DIABETES MELLITUS NON-INSULIN-DEPENDENT
     Dosage: 5 MCG; HS; SC; 5 MCG; BID; SC; 10 MCG; QPM; SC; 5 MCG; QAM; SC; 10 MCG; BID; SC; 5 MCG; BID; SC
     Route: 058
     Dates: start: 20060101, end: 20060601
  3. BYETTA [Suspect]
     Indication: DIABETES MELLITUS NON-INSULIN-DEPENDENT
     Dosage: 5 MCG; HS; SC; 5 MCG; BID; SC; 10 MCG; QPM; SC; 5 MCG; QAM; SC; 10 MCG; BID; SC; 5 MCG; BID; SC
     Route: 058
     Dates: start: 20060601, end: 20060901
  4. BYETTA [Suspect]
     Indication: DIABETES MELLITUS NON-INSULIN-DEPENDENT
     Dosage: 5 MCG; HS; SC; 5 MCG; BID; SC; 10 MCG; QPM; SC; 5 MCG; QAM; SC; 10 MCG; BID; SC; 5 MCG; BID; SC
     Route: 058
     Dates: start: 20060901, end: 20060901
  5. BYETTA [Suspect]
     Indication: DIABETES MELLITUS NON-INSULIN-DEPENDENT
     Dosage: 5 MCG; HS; SC; 5 MCG; BID; SC; 10 MCG; QPM; SC; 5 MCG; QAM; SC; 10 MCG; BID; SC; 5 MCG; BID; SC
     Route: 058
     Dates: start: 20060901
  6. DURAGESIC-100 [Suspect]
     Indication: ARTHRITIS
  7. NPH INSULIN [Concomitant]
  8. HUMALOG [Concomitant]

REACTIONS (2)
  - NAUSEA [None]
  - WEIGHT INCREASED [None]
